FAERS Safety Report 21539478 (Version 1)
Quarter: 2022Q4

REPORT INFORMATION
  Report Type: Spontaneous
  Country: US (occurrence: US)
  Receive Date: 20221102
  Receipt Date: 20221102
  Transmission Date: 20230112
  Serious: No
  Sender: FDA-Public Use
  Company Number: US-SUN PHARMACEUTICAL INDUSTRIES LTD-2022R1-343724

PATIENT
  Sex: Female

DRUGS (1)
  1. XELPROS [Suspect]
     Active Substance: LATANOPROST
     Indication: Product used for unknown indication
     Dosage: UNK
     Route: 047

REACTIONS (2)
  - Vision blurred [Recovering/Resolving]
  - Periorbital swelling [Unknown]
